FAERS Safety Report 6921812-6 (Version None)
Quarter: 2010Q3

REPORT INFORMATION
  Report Type: 
  Country: None (occurrence: None)
  Receive Date: 20100806
  Receipt Date: 20100505
  Transmission Date: 20110219
  Serious: No
  Sender: FDA-Public Use
  Company Number: 2010-06297

PATIENT
  Age: 82 Year
  Sex: Male

DRUGS (1)
  1. RAPAFLO [Suspect]
     Indication: BENIGN PROSTATIC HYPERPLASIA
     Dosage: 1 CAPSULE, DAILY, ORAL
     Route: 048
     Dates: start: 20100310, end: 20100320

REACTIONS (4)
  - DIZZINESS [None]
  - HEAD INJURY [None]
  - SINUSITIS [None]
  - SYNCOPE [None]
